FAERS Safety Report 8620074-1 (Version None)
Quarter: 2012Q3

REPORT INFORMATION
  Report Type: 
  Country: None (occurrence: None)
  Receive Date: 20120816
  Receipt Date: 20120816
  Transmission Date: 20120928
  Serious: Yes (Disabling, Other)
  Sender: FDA-Public Use
  Company Number: None

PATIENT
  Age: 62 Year
  Sex: Male
  Weight: 72.5755 kg

DRUGS (2)
  1. CIALIS [Suspect]
     Indication: ERECTILE DYSFUNCTION
     Dosage: 5MG 1 OR TWO WEEK PO 10MG ONCE PER WEEK MAX PO
     Route: 048
     Dates: start: 20081215, end: 20120801
  2. CIALIS [Suspect]
     Indication: ERECTILE DYSFUNCTION
     Dosage: 5MG 1 OR TWO WEEK PO 10MG ONCE PER WEEK MAX PO
     Route: 048
     Dates: start: 20120410, end: 20120803

REACTIONS (2)
  - DRUG INEFFECTIVE [None]
  - ERECTILE DYSFUNCTION [None]
